FAERS Safety Report 7056644-4 (Version None)
Quarter: 2010Q4

REPORT INFORMATION
  Report Type: 
  Country: None (occurrence: None)
  Receive Date: 20101019
  Receipt Date: 20101012
  Transmission Date: 20110411
  Serious: Yes (Death, Life-Threatening)
  Sender: FDA-Public Use
  Company Number: KV201000323

PATIENT
  Age: 83 Year
  Sex: Female

DRUGS (3)
  1. PREDNISOLONE [Suspect]
     Indication: HYPEREOSINOPHILIC SYNDROME
     Dosage: 30 MG, QD, 80 MG, QD
  2. IMATINIB MESYLATE [Suspect]
     Indication: HYPEREOSINOPHILIC SYNDROME
     Dosage: 100 MG, QD
  3. METHYLPREDNISOLONE (METHYDLPREDNISOLONE) [Concomitant]

REACTIONS (11)
  - ANURIA [None]
  - BLOOD LACTATE DEHYDROGENASE INCREASED [None]
  - DISSEMINATED INTRAVASCULAR COAGULATION [None]
  - HAEMORRHAGE SUBCUTANEOUS [None]
  - HAEMORRHAGIC DIATHESIS [None]
  - MOUTH HAEMORRHAGE [None]
  - PETECHIAE [None]
  - PULMONARY ALVEOLAR HAEMORRHAGE [None]
  - RENAL FAILURE [None]
  - RESPIRATORY FAILURE [None]
  - TUMOUR LYSIS SYNDROME [None]
